FAERS Safety Report 5007384-4 (Version None)
Quarter: 2006Q2

REPORT INFORMATION
  Report Type: 
  Country: None (occurrence: None)
  Receive Date: 20060518
  Receipt Date: 20060518
  Transmission Date: 20061013
  Serious: Yes (Hospitalization, Other)
  Sender: FDA-Public Use
  Company Number: None

PATIENT
  Sex: Male
  Weight: 98.8842 kg

DRUGS (1)
  1. IMITREX [Suspect]
     Indication: HEADACHE
     Dosage: AS NEEDED NASAL
     Route: 045
     Dates: start: 20021201, end: 20060101

REACTIONS (6)
  - ASTHMA [None]
  - CHILLS [None]
  - DYSPNOEA [None]
  - FATIGUE [None]
  - PNEUMONIA [None]
  - WHEEZING [None]
